FAERS Safety Report 25040820 (Version 1)
Quarter: 2025Q1

REPORT INFORMATION
  Report Type: Spontaneous
  Country: US (occurrence: US)
  Receive Date: 20250305
  Receipt Date: 20250305
  Transmission Date: 20250408
  Serious: No
  Sender: MERCK SHARP & DOHME LLC
  Company Number: US-009507513-2255549

PATIENT
  Sex: Female

DRUGS (2)
  1. KEYTRUDA [Suspect]
     Active Substance: PEMBROLIZUMAB
  2. blood plasma to create tears for her eyes [Concomitant]
     Indication: Dry eye
     Route: 031
     Dates: start: 2005

REACTIONS (1)
  - Conjunctivitis [Unknown]
